FAERS Safety Report 7145716-1 (Version None)
Quarter: 2010Q4

REPORT INFORMATION
  Report Type: 
  Country: None (occurrence: None)
  Receive Date: 20101208
  Receipt Date: 20100325
  Transmission Date: 20110411
  Serious: No
  Sender: FDA-Public Use
  Company Number: US-ABBOTT-10P-163-0634730-00

PATIENT
  Sex: Female

DRUGS (1)
  1. ERYTHROMYCIN BASE [Suspect]
     Indication: INFECTION
     Dosage: UNKNOWN
     Dates: start: 19900101, end: 19900101

REACTIONS (3)
  - PRURITUS [None]
  - RESPIRATORY DISORDER [None]
  - URTICARIA [None]
